FAERS Safety Report 4984791-7 (Version None)
Quarter: 2006Q2

REPORT INFORMATION
  Report Type: 
  Country: None (occurrence: None)
  Receive Date: 20060425
  Receipt Date: 20060425
  Transmission Date: 20061013
  Serious: Yes (Other)
  Sender: FDA-Public Use
  Company Number: None

PATIENT
  Age: 54 Year
  Sex: Female

DRUGS (1)
  1. TUBERCULIN PURIFIED PROTEIN DERIVATIVE [Suspect]
     Indication: TUBERCULIN TEST
     Dosage: .1 ML INTRADERMAL
     Route: 023
     Dates: start: 20060421

REACTIONS (5)
  - ERYTHEMA [None]
  - INFLAMMATION [None]
  - INJECTION SITE REACTION [None]
  - INJECTION SITE VESICLES [None]
  - WOUND SECRETION [None]
